FAERS Safety Report 5649876-0 (Version None)
Quarter: 2008Q1

REPORT INFORMATION
  Report Type: 
  Country: None (occurrence: None)
  Receive Date: 20080304
  Receipt Date: 20080220
  Transmission Date: 20080703
  Serious: Yes (Other)
  Sender: FDA-Public Use
  Company Number: US-ELI_LILLY_AND_COMPANY-US200706000159

PATIENT
  Sex: Female
  Weight: 79.365 kg

DRUGS (13)
  1. EVISTA [Suspect]
     Indication: OSTEOPOROSIS PROPHYLAXIS
     Dosage: 60 MG, DAILY (1/D)
     Route: 048
     Dates: start: 19990101
  2. EVISTA [Suspect]
     Dosage: 60 MG, DAILY (1/D)
     Route: 048
     Dates: start: 20050101, end: 20070531
  3. DIOVAN [Concomitant]
  4. FISH OIL [Concomitant]
  5. CALCIUM [Concomitant]
  6. OMACOR [Concomitant]
  7. VYTORIN [Concomitant]
  8. NEXIUM [Concomitant]
  9. BIOTIN [Concomitant]
  10. ASPIRIN [Concomitant]
     Dosage: 81 MG, UNK
  11. CENTRUM [Concomitant]
  12. ASCORBIC ACID [Concomitant]
  13. SELENIUM [Concomitant]

REACTIONS (5)
  - HOT FLUSH [None]
  - NODULE [None]
  - PULMONARY SARCOIDOSIS [None]
  - RESORPTION BONE INCREASED [None]
  - TOOTH RESORPTION [None]
